FAERS Safety Report 7575480-3 (Version None)
Quarter: 2011Q2

REPORT INFORMATION
  Report Type: 
  Country: None (occurrence: None)
  Receive Date: 20110627
  Receipt Date: 20110613
  Transmission Date: 20111010
  Serious: Yes (Hospitalization)
  Sender: FDA-Public Use
  Company Number: PHHY2011GB51559

PATIENT
  Age: 70 Year
  Sex: Male

DRUGS (6)
  1. OXYCONTIN [Suspect]
     Indication: PAIN
     Dosage: 20 MG, BID
     Route: 048
  2. ABSTRAL [Suspect]
     Dosage: 100-200 UG, PRN
     Route: 060
  3. HALOPERIDOL [Concomitant]
     Indication: ANTIEMETIC SUPPORTIVE CARE
     Dosage: 3 MG,
  4. NALOXONE [Suspect]
     Indication: TOXICITY TO VARIOUS AGENTS
     Dosage: 400-600 UG, UNK
     Route: 042
  5. CODEINE SULFATE [Suspect]
     Indication: DIARRHOEA
     Dosage: 60 MG, QID
     Route: 048
  6. OXYCODONE HCL [Suspect]
     Indication: PAIN
     Dosage: 5 MG, AS NECESSARY
     Route: 048

REACTIONS (4)
  - PARAESTHESIA [None]
  - WITHDRAWAL SYNDROME [None]
  - HYPOAESTHESIA [None]
  - MUSCLE TWITCHING [None]
